FAERS Safety Report 22017143 (Version 1)
Quarter: 2023Q1

REPORT INFORMATION
  Report Type: Spontaneous
  Country: US (occurrence: None)
  Receive Date: 20230217
  Receipt Date: 20230217
  Transmission Date: 20230418
  Serious: No
  Sender: FDA-Public Use
  Company Number: None

PATIENT
  Sex: Female

DRUGS (2)
  1. HUMIRA [Suspect]
     Active Substance: ADALIMUMAB
     Indication: Hidradenitis
     Dosage: FREQUENCY : WEEKLY;?
     Route: 058
     Dates: start: 202211
  2. OZEMPIC [Concomitant]
     Active Substance: SEMAGLUTIDE

REACTIONS (11)
  - Drug ineffective [None]
  - Myalgia [None]
  - Arthralgia [None]
  - Asthenia [None]
  - Dizziness [None]
  - Headache [None]
  - Fatigue [None]
  - Flushing [None]
  - Neck pain [None]
  - Chest pain [None]
  - Back pain [None]
